FAERS Safety Report 5065489-6 (Version None)
Quarter: 2006Q3

REPORT INFORMATION
  Report Type: 
  Country: None (occurrence: None)
  Receive Date: 20060725
  Receipt Date: 20060711
  Transmission Date: 20061208
  Serious: Yes (Other)
  Sender: FDA-Public Use
  Company Number: 2006PV017384

PATIENT
  Age: 67 Year
  Sex: Female

DRUGS (10)
  1. BYETTA [Suspect]
  2. CLARITIN [Concomitant]
  3. ALPHAGAN [Concomitant]
  4. TAPAZOLE [Concomitant]
  5. ASPIRIN [Concomitant]
  6. LANTUS [Concomitant]
  7. HUMALOG [Concomitant]
  8. UNIVASC [Concomitant]
  9. LEXAPRO [Concomitant]
  10. HEMATINIC PLUS [Concomitant]

REACTIONS (3)
  - CARCINOID TUMOUR OF THE STOMACH [None]
  - CONDITION AGGRAVATED [None]
  - PERNICIOUS ANAEMIA [None]
